FAERS Safety Report 8797800 (Version 1)
Quarter: 2012Q4

REPORT INFORMATION
  Report Type: 
  Country: US (occurrence: US)
  Receive Date: 20120920
  Receipt Date: 20120920
  Transmission Date: 20130627
  Serious: No
  Sender: FDA-Public Use
  Company Number: US-009507513-1209USA006324

PATIENT
  Sex: Male

DRUGS (4)
  1. JANUMET XR [Suspect]
     Indication: TYPE 2 DIABETES MELLITUS
     Dosage: 50/1000mg
     Route: 048
     Dates: start: 201204, end: 2012
  2. JANUMET XR [Suspect]
     Indication: TYPE 2 DIABETES MELLITUS
     Dosage: 100/1000mg
     Route: 048
     Dates: start: 2012
  3. GLIMEPRID [Concomitant]
  4. ACARB [Concomitant]

REACTIONS (1)
  - Blood glucose increased [Not Recovered/Not Resolved]
